FAERS Safety Report 4721267-6 (Version None)
Quarter: 2005Q3

REPORT INFORMATION
  Report Type: 
  Country: None (occurrence: None)
  Receive Date: 20050722
  Receipt Date: 20050713
  Transmission Date: 20060218
  Serious: Yes (Other)
  Sender: FDA-Public Use
  Company Number: PHBS2005SE10048

PATIENT
  Age: 62 Year
  Sex: Female

DRUGS (2)
  1. ZELNORM [Suspect]
     Indication: ABDOMINAL DISTENSION
     Dosage: 12 MG/DAY
     Route: 065
     Dates: start: 20050414
  2. EVISTA [Concomitant]
     Route: 065
     Dates: start: 20040101, end: 20050101

REACTIONS (3)
  - SUBILEUS [None]
  - VISION BLURRED [None]
  - VISUAL ACUITY REDUCED [None]
